FAERS Safety Report 11468007 (Version 3)
Quarter: 2015Q4

REPORT INFORMATION
  Report Type: Spontaneous
  Country: US (occurrence: US)
  Receive Date: 20150908
  Receipt Date: 20151006
  Transmission Date: 20160304
  Serious: No
  Sender: FDA-Public Use
  Company Number: US-PFIZER INC-2015283873

PATIENT
  Age: 57 Year
  Sex: Male
  Weight: 113 kg

DRUGS (1)
  1. EMBEDA [Suspect]
     Active Substance: MORPHINE SULFATE\NALTREXONE HYDROCHLORIDE
     Indication: PAIN
     Dosage: 2 DF (20 MG/0.8 MG), 2X/DAY

REACTIONS (1)
  - Drug ineffective [Unknown]
